FAERS Safety Report 24450158 (Version 5)
Quarter: 2025Q1

REPORT INFORMATION
  Report Type: Spontaneous
  Country: US (occurrence: US)
  Receive Date: 20241017
  Receipt Date: 20250120
  Transmission Date: 20250409
  Serious: Yes (Death, Other)
  Sender: PFIZER
  Company Number: US-PFIZER INC-PV202400134375

PATIENT
  Age: 46 Year
  Sex: Female

DRUGS (4)
  1. TUKYSA [Suspect]
     Active Substance: TUCATINIB
     Indication: Breast cancer metastatic
     Dosage: 2 TABLETS TWICE DAILY
  2. TUKYSA [Suspect]
     Active Substance: TUCATINIB
     Indication: Breast cancer female
  3. CAPECITABINE [Concomitant]
     Active Substance: CAPECITABINE
  4. TRASTUZUMAB [Concomitant]
     Active Substance: TRASTUZUMAB

REACTIONS (4)
  - Death [Fatal]
  - Shoulder operation [Unknown]
  - Pain [Unknown]
  - Illness [Unknown]

NARRATIVE: CASE EVENT DATE: 20241001
